FAERS Safety Report 9663664 (Version 1)
Quarter: 2013Q4

REPORT INFORMATION
  Report Type: Spontaneous
  Country: US (occurrence: US)
  Receive Date: 20131101
  Receipt Date: 20131101
  Transmission Date: 20140711
  Serious: Yes (Hospitalization)
  Sender: FDA-Public Use
  Company Number: US-SA-2013SA111199

PATIENT
  Age: 5 Year
  Sex: Male

DRUGS (1)
  1. LOVENOX [Suspect]
     Route: 065

REACTIONS (1)
  - Adverse event [Unknown]
